FAERS Safety Report 4510696-1 (Version None)
Quarter: 2004Q4

REPORT INFORMATION
  Report Type: 
  Country: None (occurrence: None)
  Receive Date: 20041025
  Receipt Date: 20040316
  Transmission Date: 20050328
  Serious: Yes (Other)
  Sender: FDA-Public Use
  Company Number: US-JNJFOC-20040203374

PATIENT
  Age: 51 Year
  Sex: 0
  Weight: 76.9301 kg

DRUGS (11)
  1. REMICADE [Suspect]
     Indication: CROHN'S DISEASE
     Dosage: 385 MG, 1 IN 8 WEEK, INTRAVENOUS
     Route: 042
     Dates: start: 20040210, end: 20040210
  2. REMICADE [Suspect]
     Indication: CROHN'S DISEASE
     Dosage: 385 MG, 1 IN 8 WEEK, INTRAVENOUS
     Route: 042
     Dates: start: 20031209
  3. WARFARIN SODIUM [Concomitant]
  4. CIPROFLOXACIN [Concomitant]
  5. PREDNISONE [Concomitant]
  6. PANCREASE (PANCRELIPASE) [Concomitant]
  7. PENTASA [Concomitant]
  8. IMODIUM [Concomitant]
  9. TYLENOL [Concomitant]
  10. BENADRYL [Concomitant]
  11. PHENERGAN [Concomitant]

REACTIONS (6)
  - ARTHRALGIA [None]
  - BODY TEMPERATURE INCREASED [None]
  - CONVULSION [None]
  - INFUSION RELATED REACTION [None]
  - NAUSEA [None]
  - NEUROPATHY [None]
